FAERS Safety Report 8371308-2 (Version None)
Quarter: 2012Q2

REPORT INFORMATION
  Report Type: 
  Country: None (occurrence: None)
  Receive Date: 20120518
  Receipt Date: 20120514
  Transmission Date: 20120825
  Serious: Yes (Hospitalization, Other)
  Sender: FDA-Public Use
  Company Number: US-BAYER-2012-003811

PATIENT
  Age: 31 Year
  Sex: Female
  Weight: 70.295 kg

DRUGS (9)
  1. VICODIN [Concomitant]
     Indication: PAIN
     Dosage: UNK
     Dates: start: 20060101
  2. IBUPROFEN [Concomitant]
     Dosage: UNK UNK, PRN
  3. VICODIN [Concomitant]
     Dosage: UNK
     Dates: start: 20090210
  4. YAZ [Suspect]
     Dosage: UNK
     Route: 048
     Dates: start: 20060101, end: 20070101
  5. TRAMADOL HYDROCHLORIDE [Concomitant]
     Indication: PAIN
     Dosage: UNK
     Dates: start: 20060101
  6. RELPAX [Concomitant]
     Dosage: UNK
  7. ZOFRAN [Concomitant]
     Indication: NAUSEA
     Dosage: UNK
     Dates: start: 20080101, end: 20090101
  8. ALLERGY SHOTS [Concomitant]
  9. PROVENTIL [Concomitant]
     Dosage: UNK
     Dates: start: 20050101

REACTIONS (5)
  - FEAR [None]
  - GALLBLADDER INJURY [None]
  - PANCREATITIS [None]
  - CHOLECYSTITIS CHRONIC [None]
  - PAIN [None]
